FAERS Safety Report 5463561-X (Version None)
Quarter: 2007Q3

REPORT INFORMATION
  Report Type: 
  Country: None (occurrence: None)
  Receive Date: 20070919
  Receipt Date: 20070911
  Transmission Date: 20080115
  Serious: Yes (Other)
  Sender: FDA-Public Use
  Company Number: 163-20785-07090524

PATIENT

DRUGS (2)
  1. THALOMID [Suspect]
     Indication: THYROID CANCER
     Dosage: 200MG-800MG, INCREASING OVER 6 WEEKS TO MAX 800MG, ORAL
     Route: 048
     Dates: start: 20010701, end: 20021201
  2. LEVOTHYROXINE SODIUM [Concomitant]

REACTIONS (12)
  - ANAEMIA [None]
  - CONSTIPATION [None]
  - DIZZINESS [None]
  - DRUG TOXICITY [None]
  - FATIGUE [None]
  - INFECTION [None]
  - NEUROPATHY PERIPHERAL [None]
  - NEUTROPENIA [None]
  - PERICARDIAL EFFUSION [None]
  - PULMONARY EMBOLISM [None]
  - SOMNOLENCE [None]
  - THROMBOCYTOPENIA [None]
